FAERS Safety Report 7393921-1 (Version None)
Quarter: 2011Q2

REPORT INFORMATION
  Report Type: 
  Country: None (occurrence: None)
  Receive Date: 20110405
  Receipt Date: 20110329
  Transmission Date: 20111010
  Serious: Yes (Hospitalization, Other)
  Sender: FDA-Public Use
  Company Number: FR-B.I. PHARMACEUTICALS,INC./RIDGEFIELD-2011-BP-09867YA

PATIENT
  Sex: Male
  Weight: 69.9 kg

DRUGS (10)
  1. BACTRIM [Concomitant]
     Dates: end: 20110210
  2. OMIX L.P. [Suspect]
     Indication: URINARY RETENTION
     Dosage: 0.4 MG
     Route: 048
     Dates: end: 20110210
  3. CETORNAN [Suspect]
     Indication: ENTERAL NUTRITION
     Dosage: 10 G
     Route: 048
     Dates: end: 20110210
  4. KARDEGIC (ACETYLSALICYLATE LYSINE) [Concomitant]
     Dosage: 75 MG
     Dates: end: 20110210
  5. TRAMADOL [Suspect]
     Dosage: 300 MG
     Route: 048
     Dates: end: 20110210
  6. PARACETAMOL [Suspect]
     Dosage: 4 G
     Route: 048
     Dates: end: 20110210
  7. TAHOR [Suspect]
     Indication: HYPERCHOLESTEROLAEMIA
     Dosage: 40 MG
     Route: 048
     Dates: end: 20110210
  8. NEXIUM [Suspect]
     Indication: PROPHYLAXIS AGAINST GASTROINTESTINAL ULCER
     Dosage: 40 MG
     Route: 048
     Dates: end: 20110210
  9. ATENOLOL [Concomitant]
     Dosage: 50 MG
     Dates: end: 20110210
  10. ECONAZOLE NITRATE [Concomitant]
     Dates: end: 20110210

REACTIONS (3)
  - CHOLESTASIS [None]
  - CYTOLYTIC HEPATITIS [None]
  - HEPATITIS [None]
